FAERS Safety Report 8232383-9 (Version None)
Quarter: 2012Q1

REPORT INFORMATION
  Report Type: 
  Country: None (occurrence: None)
  Receive Date: 20120323
  Receipt Date: 20120321
  Transmission Date: 20120608
  Serious: Yes (Other)
  Sender: FDA-Public Use
  Company Number: AU-GLAXOSMITHKLINE-B0789758A

PATIENT
  Sex: Male
  Weight: 77 kg

DRUGS (3)
  1. ATACAND [Concomitant]
     Indication: HYPERTENSION
     Route: 065
  2. DUTASTERIDE/TAMSULOSIN HYDROCHLORIDE [Suspect]
     Indication: PRODUCT USED FOR UNKNOWN INDICATION
     Route: 065
     Dates: start: 20120208, end: 20120222
  3. VIAGRA [Concomitant]
     Indication: ERECTILE DYSFUNCTION
     Route: 065

REACTIONS (3)
  - TRANSIENT ISCHAEMIC ATTACK [None]
  - LOSS OF CONSCIOUSNESS [None]
  - PAIN OF SKIN [None]
